FAERS Safety Report 9208658 (Version 1)
Quarter: 2013Q2

REPORT INFORMATION
  Report Type: Spontaneous
  Country: US (occurrence: None)
  Receive Date: 20130402
  Receipt Date: 20130402
  Transmission Date: 20140414
  Serious: No
  Sender: FDA-Public Use
  Company Number: None

PATIENT
  Age: 36 Year
  Sex: Female
  Weight: 92.53 kg

DRUGS (1)
  1. MONTELUKAST [Suspect]
     Indication: ASTHMA EXERCISE INDUCED
     Route: 048
     Dates: start: 20121114

REACTIONS (4)
  - Oropharyngeal pain [None]
  - Nausea [None]
  - Drug ineffective [None]
  - Therapeutic response unexpected with drug substitution [None]
